FAERS Safety Report 12146309 (Version 1)
Quarter: 2016Q1

REPORT INFORMATION
  Report Type: Spontaneous
  Country: US (occurrence: US)
  Receive Date: 20160304
  Receipt Date: 20160304
  Transmission Date: 20160526
  Serious: No
  Sender: FDA-Public Use
  Company Number: US-MYLANLABS-2016M1002269

PATIENT
  Age: 41 Year
  Sex: Female
  Weight: 71.66 kg

DRUGS (1)
  1. LIDOCAINE PATCH [Suspect]
     Active Substance: LIDOCAINE
     Indication: POST HERPETIC NEURALGIA
     Dosage: 1-2 DF QD, 12 HRS ON, 12 HRS OFF
     Route: 003
     Dates: start: 20151215, end: 20160111

REACTIONS (3)
  - Product adhesion issue [Recovered/Resolved]
  - Product quality issue [Recovered/Resolved]
  - Skin irritation [Recovered/Resolved]

NARRATIVE: CASE EVENT DATE: 20151215
